FAERS Safety Report 5747828-3 (Version None)
Quarter: 2008Q2

REPORT INFORMATION
  Report Type: 
  Country: None (occurrence: None)
  Receive Date: 20080523
  Receipt Date: 20080519
  Transmission Date: 20081010
  Serious: Yes (Hospitalization)
  Sender: FDA-Public Use
  Company Number: B0521840A

PATIENT
  Age: 79 Year
  Sex: Female

DRUGS (7)
  1. NABUMETONE [Suspect]
     Indication: DRUG USE FOR UNKNOWN INDICATION
     Route: 048
     Dates: start: 20080110, end: 20080115
  2. CORTANCYL [Suspect]
     Indication: DRUG USE FOR UNKNOWN INDICATION
     Dosage: 5MG FOUR TIMES PER DAY
     Route: 048
     Dates: end: 20080202
  3. SKENAN [Concomitant]
     Route: 065
  4. ELISOR [Concomitant]
     Route: 065
  5. PANTOPRAZOLE SODIUM [Concomitant]
     Dosage: 20MG FOUR TIMES PER DAY
     Route: 065
  6. COZAAR [Concomitant]
     Route: 065
  7. ASPEGIC 1000 [Concomitant]
     Dosage: 100MG PER DAY
     Route: 065
     Dates: end: 20071120

REACTIONS (6)
  - BLOOD CREATININE INCREASED [None]
  - GASTROINTESTINAL HAEMORRHAGE [None]
  - HAEMATEMESIS [None]
  - LARGE INTESTINE PERFORATION [None]
  - LUNG DISORDER [None]
  - ULCER [None]
